FAERS Safety Report 9203209 (Version 1)
Quarter: 2013Q1

REPORT INFORMATION
  Report Type: Spontaneous
  Country: US (occurrence: None)
  Receive Date: 20120709
  Receipt Date: 20120709
  Transmission Date: 20140127
  Serious: Yes (Other)
  Sender: FDA-Public Use
  Company Number: PHEH2011US01657

PATIENT
  Age: 45 Year
  Sex: Male

DRUGS (13)
  1. GLEEVEC (IMATINIB) [Suspect]
     Indication: CHRONIC MYELOID LEUKAEMIA (IN REMISSION)
     Route: 048
  2. CELLCEPT (MYCOPHENOLATE MOFETIL), 500MG [Concomitant]
  3. COUMADIN (WARFARIN) [Concomitant]
  4. PRAVACHOL (PRAVASTATIN SODIUM) [Concomitant]
  5. ULTRAM (TRAMADOL HYDROCHLORIDE) [Concomitant]
  6. DELTASONE (PREDNISONE) [Concomitant]
  7. PRINIVIL (LISINOPRIL [Concomitant]
  8. ZESTRIL (LISINOPRIL) [Concomitant]
  9. SENSIPAR (CINACALCET HYDROCHLORIDE) [Concomitant]
  10. ZYLOPRIM (ALLOPURINOL) [Concomitant]
  11. MAGNESIUM CHLORIDE (MAGNESIUM CHLORIDE) [Concomitant]
  12. CARDIAZEM (DILTIAZEM) [Concomitant]
  13. DEMADEX (TORASEMIDE) [Concomitant]

REACTIONS (3)
  - Renal impairment [None]
  - Nervousness [None]
  - Blood creatine increased [None]
